FAERS Safety Report 12138418 (Version 1)
Quarter: 2016Q1

REPORT INFORMATION
  Report Type: Spontaneous
  Country: AU (occurrence: AU)
  Receive Date: 20160302
  Receipt Date: 20160302
  Transmission Date: 20160526
  Serious: Yes (Other)
  Sender: FDA-Public Use
  Company Number: AU-UNICHEM LABORATORIES LIMITED-UCM201602-000034

PATIENT
  Sex: Male

DRUGS (1)
  1. METRONIDAZOLE. [Suspect]
     Active Substance: METRONIDAZOLE

REACTIONS (5)
  - Headache [Unknown]
  - Paraesthesia [Unknown]
  - Ototoxicity [Unknown]
  - Deafness neurosensory [Unknown]
  - Myalgia [Unknown]
